FAERS Safety Report 9680514 (Version 1)
Quarter: 2013Q4

REPORT INFORMATION
  Report Type: Spontaneous
  Country: US (occurrence: US)
  Receive Date: 20131111
  Receipt Date: 20131111
  Transmission Date: 20140711
  Serious: No
  Sender: FDA-Public Use
  Company Number: US-PFIZER INC-2013320491

PATIENT
  Age: 51 Year
  Sex: Female
  Weight: 73.47 kg

DRUGS (5)
  1. LYRICA [Suspect]
     Indication: NEURALGIA
     Dosage: 150 MG, 2X/DAY
     Dates: start: 20130901, end: 20130903
  2. OXYCONTIN [Concomitant]
     Dosage: UNK
  3. FENTANYL [Concomitant]
     Dosage: UNK
  4. KEPPRA [Concomitant]
     Dosage: UNK
  5. DULCOLAX [Concomitant]
     Dosage: UNK

REACTIONS (1)
  - Pain [Not Recovered/Not Resolved]
